FAERS Safety Report 15264513 (Version 1)
Quarter: 2018Q3

REPORT INFORMATION
  Report Type: Spontaneous
  Country: DE (occurrence: DE)
  Receive Date: 20180810
  Receipt Date: 20180810
  Transmission Date: 20181010
  Serious: Yes (Congenital Anomaly, Other)
  Sender: FDA-Public Use
  Company Number: DE-TORRENT-00009239

PATIENT

DRUGS (10)
  1. PROMETHAZINE [Concomitant]
     Active Substance: PROMETHAZINE\PROMETHAZINE HYDROCHLORIDE
     Indication: RESTLESSNESS
     Route: 064
     Dates: start: 20170202, end: 20170221
  2. CYTOTEC [Concomitant]
     Active Substance: MISOPROSTOL
     Indication: ABORTION INDUCED
     Dosage: UNKNOWN
     Route: 064
     Dates: start: 20170411, end: 20170411
  3. FOLSAN [Concomitant]
     Active Substance: FOLIC ACID
     Indication: PROPHYLAXIS OF NEURAL TUBE DEFECT
     Dosage: UNKNOWN
     Route: 064
     Dates: start: 20170213, end: 20170407
  4. QUETIAPINE. [Suspect]
     Active Substance: QUETIAPINE
     Indication: DEPRESSION
     Dosage: 100 [MG/D ]
     Route: 064
     Dates: start: 20170221, end: 20170411
  5. PARACETAMOL [Concomitant]
     Active Substance: ACETAMINOPHEN
     Indication: HEADACHE
     Dosage: 500 [MG/D ]/ IF REQUIRED
     Route: 064
     Dates: start: 20170119, end: 20170216
  6. AURORIX [Concomitant]
     Active Substance: MOCLOBEMIDE
     Indication: DEPRESSION
     Dosage: 600 [MG/D ]
     Route: 064
     Dates: start: 20170119, end: 20170220
  7. SALOFALK [Concomitant]
     Active Substance: MESALAMINE
     Indication: CROHN^S DISEASE
     Dosage: 3000 [MG/D ]
     Route: 064
     Dates: start: 20170119, end: 20170221
  8. DEKRISTOL 20000 [Concomitant]
     Active Substance: CHOLECALCIFEROL
     Indication: VITAMIN D DEFICIENCY
     Dosage: 20000 [IE/EVERY 4TH DAY ]
     Route: 064
     Dates: start: 20170202, end: 20170411
  9. JATROSOM [Concomitant]
     Active Substance: TRANYLCYPROMINE SULFATE\TRIFLUOPERAZINE HYDROCHLORIDE
     Indication: DEPRESSION
     Dosage: 10 [MG/D ]
     Route: 064
     Dates: start: 20170119, end: 20170219
  10. CITALOPRAM [Suspect]
     Active Substance: CITALOPRAM HYDROBROMIDE
     Indication: DEPRESSION
     Dosage: 20 [MG/D ]
     Route: 064
     Dates: start: 20170221, end: 20170411

REACTIONS (4)
  - Foetal exposure during pregnancy [Unknown]
  - Limb reduction defect [Not Recovered/Not Resolved]
  - Exomphalos [Not Recovered/Not Resolved]
  - Amniotic band syndrome [Not Recovered/Not Resolved]
